FAERS Safety Report 8415642-6 (Version None)
Quarter: 2012Q2

REPORT INFORMATION
  Report Type: 
  Country: None (occurrence: None)
  Receive Date: 20120606
  Receipt Date: 20120528
  Transmission Date: 20120825
  Serious: Yes (Hospitalization, Other)
  Sender: FDA-Public Use
  Company Number: JP-BRISTOL-MYERS SQUIBB COMPANY-16624462

PATIENT
  Age: 59 Year
  Sex: Male
  Weight: 71 kg

DRUGS (7)
  1. SODIUM PICOSULFATE [Concomitant]
     Dosage: TABS
  2. VALPROATE SODIUM [Concomitant]
     Dosage: 1DF= TABS
     Dates: start: 20120417
  3. MAGLAX [Concomitant]
     Dosage: TABS
  4. ZOTEPINE [Concomitant]
     Dosage: DOSE INCREASED:50MG/DAY
     Dates: start: 20120423
  5. MAGLAX [Concomitant]
     Dosage: 1DF= TABS
  6. DIOVAN [Concomitant]
     Dosage: TABS
  7. ABILIFY [Suspect]
     Indication: BIPOLAR DISORDER
     Dosage: INCREA:REG2-24MG,REG3-30MG,DECREASED-REG4-24MG.16MAR-18MA12,19MA-05AP12,6APR12-08MAY12,9MAY12-UNK
     Route: 048
     Dates: start: 20120316

REACTIONS (3)
  - SLEEP DISORDER [None]
  - MANIA [None]
  - PSYCHOTIC DISORDER [None]
